FAERS Safety Report 6844312-0 (Version None)
Quarter: 2010Q2

REPORT INFORMATION
  Report Type: 
  Country: None (occurrence: None)
  Receive Date: 20100629
  Receipt Date: 20100331
  Transmission Date: 20101027
  Serious: No
  Sender: FDA-Public Use
  Company Number: US-WYE-H14496810

PATIENT
  Age: 69 Year
  Sex: Male
  Weight: 82.63 kg

DRUGS (7)
  1. PRISTIQ [Suspect]
     Dosage: 50 MG 1X PER 1 DAY, ORAL
     Route: 048
     Dates: start: 20100326
  2. TORPOL XL (METOPROLOL SUCCINATE) [Concomitant]
  3. NEBIVOLOL HCL [Concomitant]
  4. SIMVASTATIN [Concomitant]
  5. FLOMAX [Concomitant]
  6. FISH (FISH OIL) [Concomitant]
  7. ASPIRIN [Concomitant]

REACTIONS (4)
  - CONSTIPATION [None]
  - DRY MOUTH [None]
  - POLLAKIURIA [None]
  - VISION BLURRED [None]
